FAERS Safety Report 18414088 (Version 1)
Quarter: 2020Q4

REPORT INFORMATION
  Report Type: Spontaneous
  Country: ES (occurrence: ES)
  Receive Date: 20201022
  Receipt Date: 20201022
  Transmission Date: 20210114
  Serious: Yes (Death)
  Sender: FDA-Public Use
  Company Number: ES-TEVA-2020-ES-1839864

PATIENT
  Age: 94 Year
  Sex: Female

DRUGS (3)
  1. FUROSEMIDA (1615A) [Interacting]
     Active Substance: FUROSEMIDE
     Indication: CARDIAC FAILURE
     Dosage: 80 MILLIGRAM DAILY;  (1-1-0)
     Route: 048
     Dates: start: 20200521, end: 20200726
  2. ESPIRONOLACTONA (326A) [Interacting]
     Active Substance: SPIRONOLACTONE
     Indication: CARDIAC FAILURE
     Dosage: 25 MILLIGRAM DAILY;
     Route: 048
     Dates: start: 20200521, end: 20200726
  3. ENALAPRIL (2142A) [Suspect]
     Active Substance: ENALAPRIL
     Indication: HYPERTENSION
     Dosage: 1 DOSAGE FORMS DAILY; 5MG (1/2-0-1/2)
     Route: 048
     Dates: start: 20200513, end: 20200726

REACTIONS (2)
  - Drug interaction [Unknown]
  - Acute kidney injury [Fatal]

NARRATIVE: CASE EVENT DATE: 20200726
